FAERS Safety Report 25968871 (Version 2)
Quarter: 2025Q4

REPORT INFORMATION
  Report Type: Report from Study
  Country: US (occurrence: US)
  Receive Date: 20251028
  Receipt Date: 20251104
  Transmission Date: 20260119
  Serious: Yes (Other)
  Sender: REGENERON
  Company Number: US-REGENERON PHARMACEUTICALS, INC.-2025-168797

PATIENT
  Sex: Female

DRUGS (1)
  1. EVINACUMAB [Suspect]
     Active Substance: EVINACUMAB
     Indication: Product used for unknown indication
     Dosage: UNK, MONTHLY
     Route: 042
     Dates: start: 20251021

REACTIONS (5)
  - Syncope [Unknown]
  - Pruritus [Recovered/Resolved]
  - Urinary tract infection [Recovering/Resolving]
  - White blood cell count increased [Unknown]
  - Herpes zoster [Recovering/Resolving]

NARRATIVE: CASE EVENT DATE: 20251001
